FAERS Safety Report 10802317 (Version 2)
Quarter: 2015Q2

REPORT INFORMATION
  Report Type: Spontaneous
  Country: AU (occurrence: AU)
  Receive Date: 20150217
  Receipt Date: 20150424
  Transmission Date: 20150821
  Serious: Yes (Hospitalization)
  Sender: FDA-Public Use
  Company Number: AU-SA-2015SA018670

PATIENT
  Age: 49 Year
  Sex: Male

DRUGS (3)
  1. CARBAMAZEPINE. [Suspect]
     Active Substance: CARBAMAZEPINE
     Dosage: AT REDUCED DOSE.
     Route: 065
  2. FABRAZYME [Suspect]
     Active Substance: AGALSIDASE BETA
     Route: 042
  3. CARBAMAZEPINE. [Suspect]
     Active Substance: CARBAMAZEPINE
     Route: 065

REACTIONS (10)
  - Ventricular hypertrophy [Unknown]
  - Ataxia [Unknown]
  - Balance disorder [Unknown]
  - Palpitations [Unknown]
  - Cardiotoxicity [Unknown]
  - Aphasia [Unknown]
  - Neuralgia [Unknown]
  - Fatigue [Unknown]
  - Nephropathy toxic [Unknown]
  - Condition aggravated [Unknown]

NARRATIVE: CASE EVENT DATE: 2015
